FAERS Safety Report 22639468 (Version 1)
Quarter: 2023Q2

REPORT INFORMATION
  Report Type: Report from Study
  Country: TH (occurrence: None)
  Receive Date: 20230626
  Receipt Date: 20230626
  Transmission Date: 20230722
  Serious: Yes (Death, Other)
  Sender: FDA-Public Use
  Company Number: 2021A805753

PATIENT
  Age: 733 Month
  Sex: Female

DRUGS (6)
  1. TAGRISSO [Suspect]
     Active Substance: OSIMERTINIB
     Indication: Non-small cell lung cancer metastatic
     Route: 048
     Dates: start: 20201126, end: 202305
  2. FOLIC ACID [Concomitant]
     Active Substance: FOLIC ACID
  3. FERROUS FUMARATE [Concomitant]
     Active Substance: FERROUS FUMARATE
  4. ACETAMINOPHEN [Concomitant]
     Active Substance: ACETAMINOPHEN
  5. ORPHENADRINE [Concomitant]
     Active Substance: ORPHENADRINE
  6. BCO [Concomitant]

REACTIONS (6)
  - Death [Fatal]
  - Gait disturbance [Unknown]
  - Pain [Unknown]
  - Decreased appetite [Unknown]
  - Paraneoplastic syndrome [Unknown]
  - Bell^s palsy [Unknown]

NARRATIVE: CASE EVENT DATE: 20211109
